FAERS Safety Report 17119059 (Version 1)
Quarter: 2019Q4

REPORT INFORMATION
  Report Type: Spontaneous
  Country: US (occurrence: US)
  Receive Date: 20191206
  Receipt Date: 20191206
  Transmission Date: 20200122
  Serious: No
  Sender: FDA-Public Use
  Company Number: US-UCBSA-2017032988

PATIENT
  Age: 34 Year
  Sex: Male

DRUGS (9)
  1. CIMZIA [Suspect]
     Active Substance: CERTOLIZUMAB PEGOL
     Indication: OFF LABEL USE
  2. DICLOFENAC [Concomitant]
     Active Substance: DICLOFENAC
     Indication: POLYARTHRITIS
  3. INDOMETHACIN. [Concomitant]
     Active Substance: INDOMETHACIN
     Indication: POLYARTHRITIS
  4. ALEVE [Concomitant]
     Active Substance: NAPROXEN SODIUM
     Indication: POLYARTHRITIS
  5. CIMZIA [Suspect]
     Active Substance: CERTOLIZUMAB PEGOL
     Indication: POLYARTHRITIS
  6. MELOXICAM. [Concomitant]
     Active Substance: MELOXICAM
     Indication: POLYARTHRITIS
  7. CIMZIA [Suspect]
     Active Substance: CERTOLIZUMAB PEGOL
     Indication: SPONDYLOARTHROPATHY
     Dosage: 400 MG, EV 4 WEEKS
     Route: 058
     Dates: start: 20160429
  8. CYCLOBENZAPRINE. [Concomitant]
     Active Substance: CYCLOBENZAPRINE
     Indication: PRODUCT USED FOR UNKNOWN INDICATION
  9. IBUPROFEN. [Concomitant]
     Active Substance: IBUPROFEN
     Indication: POLYARTHRITIS

REACTIONS (3)
  - Off label use [Unknown]
  - Spondyloarthropathy [Unknown]
  - Polyarthritis [Unknown]

NARRATIVE: CASE EVENT DATE: 20160429
